FAERS Safety Report 21160433 (Version 2)
Quarter: 2023Q2

REPORT INFORMATION
  Report Type: Spontaneous
  Country: CA (occurrence: CA)
  Receive Date: 20220802
  Receipt Date: 20230610
  Transmission Date: 20230721
  Serious: Yes (Other)
  Sender: FDA-Public Use
  Company Number: CA-drreddys-SPO/CAN/22/0152673

PATIENT
  Age: 67 Year
  Sex: Male
  Weight: 98 kg

DRUGS (16)
  1. ATORVASTATIN [Suspect]
     Active Substance: ATORVASTATIN
     Indication: Product used for unknown indication
  2. FOLIC ACID [Suspect]
     Active Substance: FOLIC ACID
     Indication: Product used for unknown indication
  3. METHOTREXATE [Suspect]
     Active Substance: METHOTREXATE
     Indication: Rheumatoid arthritis
     Route: 048
  4. LURASIDONE HYDROCHLORIDE [Suspect]
     Active Substance: LURASIDONE HYDROCHLORIDE
     Indication: Product used for unknown indication
  5. OMEPRAZOLE [Suspect]
     Active Substance: OMEPRAZOLE
     Indication: Product used for unknown indication
  6. AVAPRO [Concomitant]
     Active Substance: IRBESARTAN
     Indication: Product used for unknown indication
  7. CIPROFLOXACIN HYDROCHLORIDE [Concomitant]
     Active Substance: CIPROFLOXACIN HYDROCHLORIDE
     Indication: Product used for unknown indication
  8. CYTOTEC [Concomitant]
     Active Substance: MISOPROSTOL
     Indication: Product used for unknown indication
  9. ENBREL [Concomitant]
     Active Substance: ETANERCEPT
     Indication: Product used for unknown indication
  10. ENBREL [Concomitant]
     Active Substance: ETANERCEPT
  11. LATUDA [Concomitant]
     Active Substance: LURASIDONE HYDROCHLORIDE
     Indication: Product used for unknown indication
  12. LIPITOR [Concomitant]
     Active Substance: ATORVASTATIN CALCIUM
     Indication: Product used for unknown indication
     Route: 048
  13. NAPROXEN [Concomitant]
     Active Substance: NAPROXEN
     Indication: Product used for unknown indication
     Route: 048
  14. PLAQUENIL [Concomitant]
     Active Substance: HYDROXYCHLOROQUINE SULFATE
     Indication: Product used for unknown indication
  15. FELODIPINE [Concomitant]
     Active Substance: FELODIPINE
     Indication: Product used for unknown indication
  16. SULFASALAZINE [Concomitant]
     Active Substance: SULFASALAZINE
     Indication: Product used for unknown indication

REACTIONS (39)
  - Anal fissure [Unknown]
  - Atelectasis [Unknown]
  - Blood albumin decreased [Unknown]
  - C-reactive protein increased [Unknown]
  - Dry skin [Unknown]
  - Dysstasia [Unknown]
  - Fall [Unknown]
  - Gait disturbance [Unknown]
  - Grip strength decreased [Unknown]
  - Haematochezia [Unknown]
  - Inflammation [Unknown]
  - Joint effusion [Unknown]
  - Musculoskeletal stiffness [Unknown]
  - Nail bed bleeding [Unknown]
  - Night sweats [Unknown]
  - Nodule [Unknown]
  - Obstructive airways disorder [Unknown]
  - Thrombocytosis [Unknown]
  - Pleural effusion [Unknown]
  - Pleuritic pain [Unknown]
  - Rales [Unknown]
  - Raynaud^s phenomenon [Unknown]
  - Red blood cell sedimentation rate increased [Unknown]
  - Skin discolouration [Unknown]
  - Pain in jaw [Unknown]
  - Chest pain [Unknown]
  - Fatigue [Unknown]
  - Insomnia [Unknown]
  - Hypoaesthesia [Unknown]
  - Pain [Unknown]
  - Oedema [Unknown]
  - Pain in extremity [Unknown]
  - Joint swelling [Unknown]
  - Peripheral swelling [Unknown]
  - Arthralgia [Unknown]
  - Rash erythematous [Unknown]
  - Rash macular [Unknown]
  - Rheumatoid arthritis [Unknown]
  - Spinal osteoarthritis [Unknown]
